FAERS Safety Report 24087477 (Version 1)
Quarter: 2024Q3

REPORT INFORMATION
  Report Type: Spontaneous
  Country: US (occurrence: US)
  Receive Date: 20240714
  Receipt Date: 20240714
  Transmission Date: 20241017
  Serious: Yes (Other)
  Sender: JOHNSON AND JOHNSON
  Company Number: US-JNJFOC-20240723163

PATIENT
  Sex: Male
  Weight: 77.18 kg

DRUGS (1)
  1. TECVAYLI [Suspect]
     Active Substance: TECLISTAMAB-CQYV
     Indication: Plasma cell myeloma
     Dosage: DOSE: 1.7MG OR 1.07MG
     Route: 065
     Dates: start: 202403

REACTIONS (5)
  - Plasma cell myeloma [Recovering/Resolving]
  - Nasal congestion [Unknown]
  - Decreased immune responsiveness [Unknown]
  - Cough [Unknown]
  - Off label use [Unknown]

NARRATIVE: CASE EVENT DATE: 20240301
